FAERS Safety Report 5650834-0 (Version None)
Quarter: 2008Q1

REPORT INFORMATION
  Report Type: 
  Country: None (occurrence: None)
  Receive Date: 20080305
  Receipt Date: 20080303
  Transmission Date: 20080703
  Serious: No
  Sender: FDA-Public Use
  Company Number: FR-JNJFOC-20080300200

PATIENT
  Age: 5 Decade
  Sex: Female

DRUGS (2)
  1. RISPERDAL [Suspect]
     Indication: PSYCHOTIC DISORDER
     Route: 048
  2. TERCIAN [Concomitant]
     Indication: AGITATION

REACTIONS (1)
  - NEUTROPENIA [None]
